FAERS Safety Report 23296329 (Version 1)
Quarter: 2023Q4

REPORT INFORMATION
  Report Type: Spontaneous
  Country: US (occurrence: None)
  Receive Date: 20231214
  Receipt Date: 20231214
  Transmission Date: 20240109
  Serious: Yes (Other)
  Sender: FDA-Public Use
  Company Number: None

PATIENT
  Age: 43 Year
  Sex: Female
  Weight: 69.1 kg

DRUGS (5)
  1. MONOFERRIC [Suspect]
     Active Substance: FERRIC DERISOMALTOSE
     Indication: Iron deficiency anaemia
     Dosage: OTHER FREQUENCY : ONCE;?
     Route: 042
     Dates: start: 20231208, end: 20231208
  2. Carvedilol 6.25 mg PO BID [Concomitant]
  3. Enoxaparin 70 mg SQ BID [Concomitant]
  4. Lisinopril 20 mg PO daily [Concomitant]
  5. Tramadol 50 mg PO every 6 hours PRN pain [Concomitant]

REACTIONS (4)
  - Treatment noncompliance [None]
  - Dyspnoea [None]
  - Pulmonary pain [None]
  - Back pain [None]

NARRATIVE: CASE EVENT DATE: 20231208
